FAERS Safety Report 12659203 (Version 1)
Quarter: 2016Q3

REPORT INFORMATION
  Report Type: Spontaneous
  Country: US (occurrence: US)
  Receive Date: 20160817
  Receipt Date: 20160817
  Transmission Date: 20161109
  Serious: No
  Sender: FDA-Public Use
  Company Number: US-GLAXOSMITHKLINE-CHPA2016US003906

PATIENT
  Age: 72 Year
  Sex: Female

DRUGS (3)
  1. VOLTAREN (DICLOFENAC DIETHYLAMMONIUM SALT) GEL [Suspect]
     Active Substance: DICLOFENAC DIETHYLAMINE
     Dosage: UNK, BID
     Route: 061
     Dates: start: 201603
  2. VOLTAREN (DICLOFENAC DIETHYLAMMONIUM SALT) GEL [Suspect]
     Active Substance: DICLOFENAC DIETHYLAMINE
     Indication: ARTHRITIS
  3. VOLTAREN (DICLOFENAC DIETHYLAMMONIUM SALT) GEL [Suspect]
     Active Substance: DICLOFENAC DIETHYLAMINE
     Indication: FIBROMYALGIA

REACTIONS (3)
  - Inappropriate schedule of drug administration [Unknown]
  - Product use issue [Unknown]
  - Drug ineffective for unapproved indication [Unknown]

NARRATIVE: CASE EVENT DATE: 201603
